FAERS Safety Report 19134847 (Version 7)
Quarter: 2022Q2

REPORT INFORMATION
  Report Type: Spontaneous
  Country: US (occurrence: US)
  Receive Date: 20210414
  Receipt Date: 20220615
  Transmission Date: 20220721
  Serious: No
  Sender: FDA-Public Use
  Company Number: US-BLUEPRINT MEDICINES CORPORATION-SP-US-2021-000445

PATIENT
  Age: 21 Year
  Sex: Male

DRUGS (1)
  1. AYVAKIT [Suspect]
     Active Substance: AVAPRITINIB
     Indication: Gastrointestinal stromal tumour
     Route: 048
     Dates: start: 20210104

REACTIONS (7)
  - Hair colour changes [Recovering/Resolving]
  - Insomnia [Unknown]
  - Fatigue [Unknown]
  - Memory impairment [Unknown]
  - Nausea [Unknown]
  - Swelling [Unknown]
  - Peripheral swelling [Unknown]
